FAERS Safety Report 23376128 (Version 2)
Quarter: 2025Q3

REPORT INFORMATION
  Report Type: Report from Study
  Country: CA (occurrence: CA)
  Receive Date: 20240108
  Receipt Date: 20250911
  Transmission Date: 20251021
  Serious: Yes (Hospitalization, Other)
  Sender: TAKEDA
  Company Number: CA-TAKEDA-2022TUS093889

PATIENT
  Age: 67 Year
  Sex: Male

DRUGS (4)
  1. VEDOLIZUMAB [Suspect]
     Active Substance: VEDOLIZUMAB
     Indication: Crohn^s disease
  2. VEDOLIZUMAB [Suspect]
     Active Substance: VEDOLIZUMAB
  3. VEDOLIZUMAB [Suspect]
     Active Substance: VEDOLIZUMAB
  4. GABAPENTIN [Concomitant]
     Active Substance: GABAPENTIN

REACTIONS (3)
  - Abdominal pain [Recovered/Resolved]
  - Haematochezia [Not Recovered/Not Resolved]
  - Gastric infection [Recovered/Resolved]

NARRATIVE: CASE EVENT DATE: 20250829
